FAERS Safety Report 22149241 (Version 1)
Quarter: 2023Q1

REPORT INFORMATION
  Report Type: Spontaneous
  Country: US (occurrence: US)
  Receive Date: 20230329
  Receipt Date: 20230329
  Transmission Date: 20230418
  Serious: No
  Sender: FDA-Public Use
  Company Number: US-drreddys-SPO/USA/23/0160432

PATIENT
  Age: 17 Year

DRUGS (1)
  1. ZENATANE [Suspect]
     Active Substance: ISOTRETINOIN
     Indication: Acne
     Dosage: RMA ISSUE DATE:27 JULY 2021 12:00:00 AM, 19 OCTOBER 2022 02:26:10 PM, 23 NOVEMBER 2022 08:51:37 AM,

REACTIONS (1)
  - Back pain [Unknown]
